FAERS Safety Report 6835218-1 (Version None)
Quarter: 2010Q3

REPORT INFORMATION
  Report Type: 
  Country: None (occurrence: None)
  Receive Date: 20100713
  Receipt Date: 20100629
  Transmission Date: 20110219
  Serious: Yes (Hospitalization)
  Sender: FDA-Public Use
  Company Number: CO-RANBAXY-2010RR-35379

PATIENT
  Age: 47 Year
  Sex: Male

DRUGS (7)
  1. LAMIVUDINE (EPIVIR HBV) [Suspect]
     Indication: HIV INFECTION
  2. ZIDOVUDINE [Suspect]
     Indication: HIV INFECTION
  3. EFAVIRENZ [Suspect]
     Indication: HIV INFECTION
  4. ISONIAZID [Concomitant]
     Indication: TUBERCULOSIS
  5. RIFAMPICIN [Concomitant]
     Indication: TUBERCULOSIS
  6. PYRAZINAMIDE [Concomitant]
     Indication: TUBERCULOSIS
  7. ETHAMBUTOL HYDROCHLORIDE [Concomitant]
     Indication: TUBERCULOSIS

REACTIONS (1)
  - IMMUNE RECONSTITUTION SYNDROME [None]
